FAERS Safety Report 5316909-0 (Version None)
Quarter: 2007Q2

REPORT INFORMATION
  Report Type: 
  Country: None (occurrence: None)
  Receive Date: 20070504
  Receipt Date: 20070427
  Transmission Date: 20071010
  Serious: Yes (Hospitalization)
  Sender: FDA-Public Use
  Company Number: FR-GLAXOSMITHKLINE-B0469009A

PATIENT
  Age: 71 Year
  Sex: Female
  Weight: 62 kg

DRUGS (6)
  1. ZOFRAN [Suspect]
     Dosage: 8MG PER DAY
     Route: 042
     Dates: start: 20070308, end: 20070308
  2. POLARAMINE [Suspect]
     Dosage: 5MG PER DAY
     Route: 042
     Dates: start: 20070308, end: 20070308
  3. CIMETIDINE HCL [Suspect]
     Dosage: 300MG PER DAY
     Route: 042
     Dates: start: 20070308, end: 20070308
  4. CARBOPLATIN [Suspect]
     Dosage: 145MG PER DAY
     Route: 042
     Dates: start: 20070308, end: 20070308
  5. TAXOL [Suspect]
     Dosage: 100MG PER DAY
     Route: 042
     Dates: start: 20070308, end: 20070308
  6. DEXAMETHASONE 0.5MG TAB [Concomitant]
     Dosage: 8MG PER DAY
     Route: 065
     Dates: start: 20070308, end: 20070308

REACTIONS (7)
  - BACK PAIN [None]
  - BLOOD LACTATE DEHYDROGENASE INCREASED [None]
  - CHROMATURIA [None]
  - COOMBS TEST POSITIVE [None]
  - HAEMOLYTIC ANAEMIA [None]
  - HAPTOGLOBIN DECREASED [None]
  - SKIN DISCOLOURATION [None]
